FAERS Safety Report 4715992-0 (Version None)
Quarter: 2005Q3

REPORT INFORMATION
  Report Type: 
  Country: None (occurrence: None)
  Receive Date: 20050718
  Receipt Date: 20050714
  Transmission Date: 20060218
  Serious: Yes (Hospitalization)
  Sender: FDA-Public Use
  Company Number: 175

PATIENT
  Age: 42 Year
  Sex: Male

DRUGS (10)
  1. MELPHALAN [Suspect]
     Indication: MULTIPLE MYELOMA
     Dosage: 400MG SEE DOSAGE TEXT
     Route: 042
     Dates: start: 20050329, end: 20050522
  2. DEXAMETHASONE [Suspect]
     Indication: MULTIPLE MYELOMA
     Dosage: 20MGD SEE DOSAGE TEXT
     Route: 048
     Dates: start: 20050613, end: 20050624
  3. THALIDOMIDE [Suspect]
     Indication: MULTIPLE MYELOMA
     Dosage: 100MG PER DAY
     Route: 048
     Dates: start: 20050613, end: 20050629
  4. BORTEZOMIB [Suspect]
     Indication: MULTIPLE MYELOMA
     Route: 042
     Dates: start: 20050122, end: 20050306
  5. PROTONIX [Concomitant]
     Route: 048
  6. ZOVIRAX [Concomitant]
     Dosage: 400MG TWICE PER DAY
     Dates: start: 20050101, end: 20050630
  7. K-DUR 10 [Concomitant]
     Route: 048
  8. LEVAQUIN [Concomitant]
     Dosage: 500MG PER DAY
     Route: 048
     Dates: start: 20050613, end: 20050619
  9. LOVENOX [Concomitant]
     Dosage: 40MG PER DAY
     Route: 058
     Dates: start: 20050613, end: 20050617
  10. DIFLUCAN [Concomitant]
     Dosage: 100MG PER DAY
     Route: 048
     Dates: start: 20050613, end: 20050619

REACTIONS (4)
  - CEREBRAL INFARCTION [None]
  - HEADACHE [None]
  - HEMIANOPIA HOMONYMOUS [None]
  - ISCHAEMIA [None]
